FAERS Safety Report 6206221-X (Version None)
Quarter: 2009Q2

REPORT INFORMATION
  Report Type: 
  Country: None (occurrence: None)
  Receive Date: 20090528
  Receipt Date: 20090520
  Transmission Date: 20091009
  Serious: Yes (Hospitalization)
  Sender: FDA-Public Use
  Company Number: US-KINGPHARMUSA00001-K200900610

PATIENT
  Sex: Female

DRUGS (1)
  1. ALTACE [Suspect]
     Route: 048

REACTIONS (2)
  - LARYNGEAL OEDEMA [None]
  - RESPIRATORY DISORDER [None]
